FAERS Safety Report 6963835-7 (Version None)
Quarter: 2010Q3

REPORT INFORMATION
  Report Type: 
  Country: None (occurrence: None)
  Receive Date: 20100830
  Receipt Date: 20100812
  Transmission Date: 20110219
  Serious: Yes (Hospitalization, Other)
  Sender: FDA-Public Use
  Company Number: 2010003524

PATIENT
  Age: 72 Year
  Sex: Female

DRUGS (14)
  1. TARCEVA [Suspect]
     Indication: PANCREATIC CARCINOMA
     Dosage: 100 MG QD ORAL
     Route: 048
     Dates: start: 20100630, end: 20100717
  2. PRIMAXIN [Suspect]
     Indication: INFECTION
     Dosage: 500 MG TID INTRAVENOUS
     Route: 042
     Dates: start: 20100710, end: 20100719
  3. GEMCITABINE [Suspect]
     Indication: PANCREATIC CARCINOMA
     Dosage: 1600 MG INTRAVENOUS
     Route: 042
     Dates: start: 20100630, end: 20100720
  4. TETRAZEPAM (TETRAZEPAM) [Concomitant]
  5. BUPRENORPHINE HYDROCHLORIDE [Concomitant]
  6. CITALOPRAM HYDROBROMIDE [Concomitant]
  7. AMLODIPINE [Concomitant]
  8. BISOPROLOL FUMARATE [Concomitant]
  9. CAPTOPRIL [Concomitant]
  10. HYDROCHLOROTHIAZIDE [Concomitant]
  11. PENTALONE (PENTAERITHRITYL TETRANITRATE) [Concomitant]
  12. PANTOPRAZOLE SODIUM [Concomitant]
  13. ENOXAPARIN SODIUM [Concomitant]
  14. ACTRAPHANE [Concomitant]

REACTIONS (4)
  - CLOSTRIDIUM COLITIS [None]
  - DEPRESSION [None]
  - INFECTION [None]
  - INTERVERTEBRAL DISC PROTRUSION [None]
